FAERS Safety Report 4495221-6 (Version None)
Quarter: 2004Q4

REPORT INFORMATION
  Report Type: 
  Country: None (occurrence: None)
  Receive Date: 20041108
  Receipt Date: 20040319
  Transmission Date: 20050328
  Serious: No
  Sender: FDA-Public Use
  Company Number: US-GLAXOSMITHKLINE-A0503525A

PATIENT
  Age: 85 Year
  Sex: Male

DRUGS (7)
  1. AVANDAMET [Suspect]
     Indication: DIABETES MELLITUS
     Dosage: 1TAB TWICE PER DAY
     Route: 048
     Dates: start: 20040101, end: 20040501
  2. ARICEPT [Concomitant]
  3. LASIX [Concomitant]
  4. COUMADIN [Concomitant]
  5. LEVOXYL [Concomitant]
  6. DIGITEK [Concomitant]
  7. UNIVASC [Concomitant]

REACTIONS (1)
  - DIARRHOEA [None]
